FAERS Safety Report 7131242-2 (Version None)
Quarter: 2010Q4

REPORT INFORMATION
  Report Type: 
  Country: None (occurrence: None)
  Receive Date: 20101201
  Receipt Date: 20101126
  Transmission Date: 20110411
  Serious: Yes (Other)
  Sender: FDA-Public Use
  Company Number: NL-BRISTOL-MYERS SQUIBB COMPANY-15411515

PATIENT
  Age: 70 Year
  Sex: Male

DRUGS (5)
  1. PRAVASTATIN SODIUM [Suspect]
  2. METFORMIN HCL [Concomitant]
  3. ACETYLSALICYLIC ACID [Concomitant]
  4. TOLBUTAMIDE [Concomitant]
  5. TEMAZEPAM [Concomitant]

REACTIONS (2)
  - TENDON RUPTURE [None]
  - TENDONITIS [None]
